FAERS Safety Report 18926239 (Version 7)
Quarter: 2023Q4

REPORT INFORMATION
  Report Type: Spontaneous
  Country: FR (occurrence: FR)
  Receive Date: 20210223
  Receipt Date: 20231021
  Transmission Date: 20240110
  Serious: Yes (Other)
  Sender: FDA-Public Use
  Company Number: FR-AUROBINDO-AUR-APL-2021-007203

PATIENT
  Age: 70 Year
  Sex: Male

DRUGS (1)
  1. LATANOPROST [Suspect]
     Active Substance: LATANOPROST
     Indication: Product used for unknown indication
     Dosage: UNK UNK, ONCE A DAY, A DROP IN THE LEFT EYE EVERY EVENING 7 PM, QD
     Route: 065

REACTIONS (6)
  - Arrhythmia [Recovered/Resolved]
  - Atrial tachycardia [Recovered/Resolved]
  - Dizziness [Recovered/Resolved]
  - Intentional product misuse [Recovered/Resolved]
  - Wrong technique in product usage process [Recovered/Resolved]
  - Intentional product use issue [Recovered/Resolved]
